FAERS Safety Report 23798920 (Version 1)
Quarter: 2024Q2

REPORT INFORMATION
  Report Type: Spontaneous
  Country: US (occurrence: None)
  Receive Date: 20240427
  Receipt Date: 20240427
  Transmission Date: 20240716
  Serious: Yes (Hospitalization)
  Sender: FDA-Public Use
  Company Number: None

PATIENT
  Age: 61 Year
  Sex: Male
  Weight: 147 kg

DRUGS (1)
  1. METFORMIN HYDROCHLORIDE [Suspect]
     Active Substance: METFORMIN HYDROCHLORIDE
     Indication: Diabetes mellitus
     Dosage: FREQUENCY : DAILY;?
     Route: 048
     Dates: start: 20221025, end: 20230315

REACTIONS (5)
  - Abdominal pain [None]
  - Abdominal discomfort [None]
  - Abdominal pain [None]
  - Taste disorder [None]
  - Vomiting [None]

NARRATIVE: CASE EVENT DATE: 20230315
